FAERS Safety Report 11143380 (Version 2)
Quarter: 2015Q2

REPORT INFORMATION
  Report Type: Spontaneous
  Country: TH (occurrence: TH)
  Receive Date: 20150528
  Receipt Date: 20150605
  Transmission Date: 20150821
  Serious: Yes (Hospitalization)
  Sender: FDA-Public Use
  Company Number: TH-009507513-1505THA012719

PATIENT
  Age: 50 Year
  Sex: Male

DRUGS (7)
  1. ZENHALE [Suspect]
     Active Substance: FORMOTEROL FUMARATE\MOMETASONE FUROATE
     Indication: ASTHMA
     Dosage: 1 DF, BID
     Route: 055
     Dates: start: 201503, end: 201504
  2. ROXITHROMYCIN [Concomitant]
     Active Substance: ROXITHROMYCIN
     Indication: PROPHYLAXIS
     Dosage: UNK
  3. ZENHALE [Suspect]
     Active Substance: FORMOTEROL FUMARATE\MOMETASONE FUROATE
     Dosage: UNK
     Route: 055
     Dates: start: 20140723, end: 201502
  4. DEXAMETHASONE. [Concomitant]
     Active Substance: DEXAMETHASONE
     Dosage: 0.5 MG/DAY
     Route: 048
  5. SINGULAIR [Concomitant]
     Active Substance: MONTELUKAST SODIUM
     Indication: ASTHMA
     Dosage: UNK
     Route: 048
  6. PUROXAN [Concomitant]
     Dosage: UNK
  7. BUDESONIDE. [Concomitant]
     Active Substance: BUDESONIDE
     Indication: ASTHMA
     Dosage: 1600 MICROGRAM PER DAY,

REACTIONS (1)
  - Pneumonia [Recovered/Resolved]

NARRATIVE: CASE EVENT DATE: 201504
